FAERS Safety Report 5334315-X (Version None)
Quarter: 2007Q2

REPORT INFORMATION
  Report Type: 
  Country: None (occurrence: None)
  Receive Date: 20070523
  Receipt Date: 20070523
  Transmission Date: 20071010
  Serious: Yes (Other)
  Sender: FDA-Public Use
  Company Number: None

PATIENT
  Age: 51 Year
  Sex: Female
  Weight: 52.6173 kg

DRUGS (1)
  1. ZOSYN [Suspect]
     Indication: LUNG INFECTION
     Dosage: 4.5GM Q8H IV
     Route: 042
     Dates: start: 20070425, end: 20070429

REACTIONS (2)
  - NEUTROPENIA [None]
  - WHITE BLOOD CELL COUNT DECREASED [None]
